FAERS Safety Report 5400372-5 (Version None)
Quarter: 2007Q3

REPORT INFORMATION
  Report Type: 
  Country: None (occurrence: None)
  Receive Date: 20070730
  Receipt Date: 20070726
  Transmission Date: 20080115
  Serious: Yes (Hospitalization)
  Sender: FDA-Public Use
  Company Number: B0474914A

PATIENT
  Age: 62 Year
  Sex: Female
  Weight: 65 kg

DRUGS (4)
  1. ARIXTRA [Suspect]
     Indication: PHLEBITIS
     Dosage: 7.5MG PER DAY
     Route: 058
     Dates: start: 20070526, end: 20070527
  2. UNFRACTIONATED HEPARIN [Suspect]
     Indication: PHLEBITIS
     Route: 042
     Dates: start: 20070528
  3. IRBESARTAN [Concomitant]
  4. OGAST [Concomitant]

REACTIONS (4)
  - HAEMATOMA [None]
  - MALAISE [None]
  - OEDEMA PERIPHERAL [None]
  - PAIN IN EXTREMITY [None]
